FAERS Safety Report 25374100 (Version 2)
Quarter: 2025Q2

REPORT INFORMATION
  Report Type: Spontaneous
  Country: SG (occurrence: SG)
  Receive Date: 20250529
  Receipt Date: 20250610
  Transmission Date: 20250717
  Serious: Yes (Other)
  Sender: SANOFI AVENTIS
  Company Number: SG-SA-2025SA152634

PATIENT
  Age: 40 Year

DRUGS (2)
  1. DUPIXENT [Suspect]
     Active Substance: DUPILUMAB
     Indication: Dermatitis atopic
     Dosage: UNK UNK, QOW
     Dates: start: 202412
  2. DUPIXENT [Suspect]
     Active Substance: DUPILUMAB

REACTIONS (6)
  - Drug-induced liver injury [Recovering/Resolving]
  - Jaundice [Unknown]
  - Hepatic enzyme increased [Not Recovered/Not Resolved]
  - Gastroenteritis viral [Unknown]
  - Rotator cuff repair [Unknown]
  - Inappropriate schedule of product administration [Unknown]

NARRATIVE: CASE EVENT DATE: 20250401
